FAERS Safety Report 8225489-1 (Version None)
Quarter: 2012Q1

REPORT INFORMATION
  Report Type: 
  Country: None (occurrence: None)
  Receive Date: 20120321
  Receipt Date: 20120315
  Transmission Date: 20120608
  Serious: No
  Sender: FDA-Public Use
  Company Number: US-B.I. PHARMACEUTICALS,INC./RIDGEFIELD-2012-BP-05050BP

PATIENT
  Sex: Female

DRUGS (6)
  1. SOTALOL HCL [Concomitant]
     Indication: CARDIAC DISORDER
     Route: 048
  2. COLOSENE [Concomitant]
     Route: 048
  3. VYTORIN [Concomitant]
     Indication: CARDIAC DISORDER
     Route: 048
  4. FUROSEMIDE [Concomitant]
     Indication: FLUID RETENTION
     Route: 048
  5. LEVOTHYROXINE SODIUM [Concomitant]
     Indication: THYROID DISORDER
     Route: 048
     Dates: start: 19900101
  6. TRADJENTA [Suspect]
     Indication: TYPE 2 DIABETES MELLITUS
     Dosage: 5 MG
     Route: 048
     Dates: start: 20120301, end: 20120305

REACTIONS (2)
  - LIP SWELLING [None]
  - SWELLING FACE [None]
